FAERS Safety Report 6628699-X (Version None)
Quarter: 2010Q1

REPORT INFORMATION
  Report Type: 
  Country: None (occurrence: None)
  Receive Date: 20100311
  Receipt Date: 20100301
  Transmission Date: 20100710
  Serious: Yes (Other)
  Sender: FDA-Public Use
  Company Number: TR-ELI_LILLY_AND_COMPANY-TR201003000868

PATIENT
  Sex: Male

DRUGS (3)
  1. HUMULIN N [Suspect]
     Indication: GESTATIONAL DIABETES
     Dosage: UNK UNK, DAILY (1/D)
     Route: 064
     Dates: start: 20091201, end: 20100106
  2. NOVORAPID [Concomitant]
     Indication: GESTATIONAL DIABETES
     Dosage: 11 IU, 3/D
     Route: 064
     Dates: start: 20091201, end: 20100106
  3. FERRO SANOL [Concomitant]
     Indication: MINERAL SUPPLEMENTATION
     Dosage: UNK UNK, 2/D
     Route: 064
     Dates: start: 20090901

REACTIONS (2)
  - DRUG EXPOSURE DURING PREGNANCY [None]
  - PREMATURE BABY [None]
